FAERS Safety Report 19989684 (Version 1)
Quarter: 2021Q4

REPORT INFORMATION
  Report Type: Report from Study
  Country: US (occurrence: US)
  Receive Date: 20211025
  Receipt Date: 20211025
  Transmission Date: 20220303
  Serious: No
  Sender: FDA-Public Use
  Company Number: US-ACADIA PHARMACEUTICALS INC.-ACA-2021-PIM-003534

PATIENT
  Sex: Female
  Weight: 57 kg

DRUGS (10)
  1. NUPLAZID [Suspect]
     Active Substance: PIMAVANSERIN TARTRATE
     Indication: Parkinson^s disease
     Dosage: 34 MILLIGRAM, QD
     Route: 065
     Dates: start: 20210226
  2. SEROQUEL [Suspect]
     Active Substance: QUETIAPINE FUMARATE
  3. QUETIAPINE [Suspect]
     Active Substance: QUETIAPINE
     Dosage: 100 MILLIGRAM
  4. QUETIAPINE [Suspect]
     Active Substance: QUETIAPINE
     Dosage: 25 MG 1/2 TABLETS, BID
  5. QUETIAPINE [Suspect]
     Active Substance: QUETIAPINE
     Dosage: 50 MG ONE AND ONE-HALF TABLET AT BEDTIME
     Dates: start: 20210929
  6. CARBIDOPA\LEVODOPA [Concomitant]
     Active Substance: CARBIDOPA\LEVODOPA
     Dosage: 25/100
  7. FAMOTIDINE [Concomitant]
     Active Substance: FAMOTIDINE
     Dosage: 20 MILLIGRAM
  8. MELATONIN [Concomitant]
     Active Substance: MELATONIN
     Dosage: 3 MILLIGRAM
  9. TIMOLOL MALEATE [Concomitant]
     Active Substance: TIMOLOL MALEATE
     Dosage: 0.5%
     Route: 047
  10. CYANOCOBALAMIN [Concomitant]
     Active Substance: CYANOCOBALAMIN
     Dosage: 1000 MCG

REACTIONS (1)
  - Hallucination [Not Recovered/Not Resolved]
